FAERS Safety Report 18511406 (Version 1)
Quarter: 2020Q4

REPORT INFORMATION
  Report Type: Spontaneous
  Country: US (occurrence: US)
  Receive Date: 20201117
  Receipt Date: 20201117
  Transmission Date: 20210114
  Serious: Yes (Life-Threatening, Hospitalization, Disabling)
  Sender: FDA-Public Use
  Company Number: None

PATIENT
  Age: 53 Year
  Sex: Female
  Weight: 180 kg

DRUGS (18)
  1. LISINOPRIL. [Suspect]
     Active Substance: LISINOPRIL
     Indication: HYPERTENSION
     Dosage: ?          QUANTITY:1 TABLET(S);?
     Route: 048
  2. BUPROPION. [Concomitant]
     Active Substance: BUPROPION
  3. TYLENOL [Concomitant]
     Active Substance: ACETAMINOPHEN
  4. BIPAP MACHINE [Concomitant]
  5. NORETHINDRONE. [Concomitant]
     Active Substance: NORETHINDRONE
  6. DESCOVY [Concomitant]
     Active Substance: EMTRICITABINE\TENOFOVIR ALAFENAMIDE FUMARATE
  7. CERTIZINE [Concomitant]
  8. VITAMIN D [Concomitant]
     Active Substance: VITAMIN D NOS
  9. TERBUTALINE [Concomitant]
     Active Substance: TERBUTALINE
  10. POTASSIUM [Concomitant]
     Active Substance: POTASSIUM
  11. METOPROLOL. [Concomitant]
     Active Substance: METOPROLOL
  12. FLUTICASONE. [Concomitant]
     Active Substance: FLUTICASONE
  13. TICICAY [Concomitant]
  14. BETAMETHASONE. [Concomitant]
     Active Substance: BETAMETHASONE
  15. CHLORTHALIDONE. [Concomitant]
     Active Substance: CHLORTHALIDONE
  16. CABERGOLINE SALINE [Concomitant]
  17. GABAPENTIN. [Concomitant]
     Active Substance: GABAPENTIN
  18. PROBIOTICS [Concomitant]
     Active Substance: PROBIOTICS NOS

REACTIONS (4)
  - Gait inability [None]
  - Anaphylactic reaction [None]
  - Loss of personal independence in daily activities [None]
  - Aphasia [None]

NARRATIVE: CASE EVENT DATE: 20200611
